FAERS Safety Report 6945517-0 (Version None)
Quarter: 2010Q3

REPORT INFORMATION
  Report Type: 
  Country: None (occurrence: None)
  Receive Date: 20100827
  Receipt Date: 20100820
  Transmission Date: 20110219
  Serious: Yes (Death, Hospitalization)
  Sender: FDA-Public Use
  Company Number: US-CUBIST-2010S1000888

PATIENT
  Age: 75 Year
  Sex: Male
  Weight: 81.4 kg

DRUGS (44)
  1. CUBICIN [Suspect]
     Indication: STAPHYLOCOCCAL INFECTION
     Route: 042
     Dates: start: 20100625, end: 20100707
  2. CUBICIN [Suspect]
     Indication: OSTEOMYELITIS
     Route: 042
     Dates: start: 20100625, end: 20100707
  3. CUBICIN [Suspect]
     Route: 042
     Dates: start: 20100708, end: 20100715
  4. CUBICIN [Suspect]
     Route: 042
     Dates: start: 20100708, end: 20100715
  5. CUBICIN [Suspect]
     Route: 042
     Dates: start: 20100625, end: 20100715
  6. CUBICIN [Suspect]
     Route: 042
     Dates: start: 20100625, end: 20100715
  7. WARFARIN SODIUM [Suspect]
     Indication: ATRIAL FIBRILLATION
     Dates: start: 20100626, end: 20100714
  8. HEPARIN [Concomitant]
     Indication: PRODUCT USED FOR UNKNOWN INDICATION
     Dosage: DOSE UNIT:25000
     Route: 042
     Dates: start: 20100622, end: 20100629
  9. HYDROMORPHONE [Concomitant]
     Indication: PRODUCT USED FOR UNKNOWN INDICATION
     Route: 042
     Dates: start: 20100621, end: 20100629
  10. AZITHROMYCIN [Concomitant]
     Indication: PRODUCT USED FOR UNKNOWN INDICATION
     Route: 048
     Dates: start: 20100624, end: 20100627
  11. TPN ELECTROLYTES IN PLASTIC CONTAINER [Concomitant]
     Indication: PRODUCT USED FOR UNKNOWN INDICATION
     Dates: start: 20100712, end: 20100713
  12. ACETAMINOPHEN [Concomitant]
     Indication: PRODUCT USED FOR UNKNOWN INDICATION
     Route: 048
     Dates: start: 20100604, end: 20100723
  13. ASPIRIN [Concomitant]
     Indication: PRODUCT USED FOR UNKNOWN INDICATION
     Route: 048
     Dates: start: 20100605, end: 20100723
  14. DOCUSATE [Concomitant]
     Indication: PRODUCT USED FOR UNKNOWN INDICATION
     Route: 048
     Dates: start: 20100623, end: 20100723
  15. FUROSEMIDE [Concomitant]
     Indication: PRODUCT USED FOR UNKNOWN INDICATION
     Route: 048
     Dates: start: 20100628, end: 20100630
  16. FUROSEMIDE [Concomitant]
     Dates: start: 20100630, end: 20100702
  17. FAMOTIDINE [Concomitant]
     Indication: PRODUCT USED FOR UNKNOWN INDICATION
     Route: 048
     Dates: start: 20100623, end: 20100723
  18. FAMOTIDINE [Concomitant]
     Route: 042
     Dates: start: 20100623, end: 20100723
  19. HYDROCORTISONE [Concomitant]
     Indication: PRODUCT USED FOR UNKNOWN INDICATION
     Route: 048
     Dates: start: 20100710, end: 20100714
  20. HYDROCORTISONE [Concomitant]
     Route: 042
     Dates: start: 20100714, end: 20100723
  21. RIFAMPIN [Concomitant]
     Indication: PRODUCT USED FOR UNKNOWN INDICATION
     Route: 042
     Dates: start: 20100710, end: 20100712
  22. SOTALOL HCL [Concomitant]
     Indication: PRODUCT USED FOR UNKNOWN INDICATION
     Route: 048
     Dates: start: 20100622, end: 20100701
  23. SOTALOL HCL [Concomitant]
     Route: 048
     Dates: start: 20100708, end: 20100709
  24. SOTALOL HCL [Concomitant]
     Route: 048
     Dates: start: 20100713, end: 20100723
  25. PERCOCET [Concomitant]
     Indication: PRODUCT USED FOR UNKNOWN INDICATION
     Route: 048
     Dates: start: 20100617, end: 20100629
  26. LINEZOLID [Concomitant]
     Indication: PRODUCT USED FOR UNKNOWN INDICATION
     Route: 042
     Dates: start: 20100716, end: 20100722
  27. CIPROFLOXACIN [Concomitant]
     Indication: PRODUCT USED FOR UNKNOWN INDICATION
     Route: 042
     Dates: start: 20100713, end: 20100716
  28. CIPROFLOXACIN [Concomitant]
  29. INSULIN [Concomitant]
     Indication: PRODUCT USED FOR UNKNOWN INDICATION
     Route: 058
     Dates: start: 20100713, end: 20100723
  30. MEROPENEM [Concomitant]
     Indication: PRODUCT USED FOR UNKNOWN INDICATION
     Route: 042
     Dates: start: 20100713, end: 20100723
  31. METHYLPREDNISOLONE [Concomitant]
     Indication: PRODUCT USED FOR UNKNOWN INDICATION
     Route: 042
     Dates: start: 20100715, end: 20100723
  32. PROPOFOL [Concomitant]
     Indication: PRODUCT USED FOR UNKNOWN INDICATION
     Dosage: DOSE UNIT:0.4
     Dates: start: 20100714, end: 20100723
  33. PHYTONADIONE [Concomitant]
     Indication: PRODUCT USED FOR UNKNOWN INDICATION
     Route: 042
     Dates: start: 20100714, end: 20100714
  34. TRAMADOL HCL [Concomitant]
     Indication: PRODUCT USED FOR UNKNOWN INDICATION
     Route: 048
     Dates: start: 20100701, end: 20100701
  35. TRAMADOL HCL [Concomitant]
     Route: 048
     Dates: start: 20100701, end: 20100701
  36. ACETAZOLAMIDE [Concomitant]
     Indication: PRODUCT USED FOR UNKNOWN INDICATION
     Route: 042
     Dates: start: 20100714, end: 20100714
  37. XANAX [Concomitant]
     Indication: PRODUCT USED FOR UNKNOWN INDICATION
     Route: 048
     Dates: start: 20100623, end: 20100623
  38. XANAX [Concomitant]
     Route: 048
     Dates: start: 20100708, end: 20100708
  39. NOREPINEPHRINE BITARTRATE [Concomitant]
     Indication: PRODUCT USED FOR UNKNOWN INDICATION
     Route: 042
     Dates: start: 20100714, end: 20100714
  40. PROVIGIL [Concomitant]
     Indication: PRODUCT USED FOR UNKNOWN INDICATION
     Route: 048
     Dates: start: 20100713, end: 20100713
  41. MOM [Concomitant]
     Indication: PRODUCT USED FOR UNKNOWN INDICATION
     Route: 048
     Dates: start: 20100712, end: 20100712
  42. ACETYLCYSTEINE [Concomitant]
     Indication: PRODUCT USED FOR UNKNOWN INDICATION
     Route: 055
     Dates: start: 20100605, end: 20100713
  43. ALBUTEROL [Concomitant]
     Indication: PRODUCT USED FOR UNKNOWN INDICATION
     Route: 055
     Dates: start: 20100702, end: 20100723
  44. SYMBICORT [Concomitant]
     Indication: PRODUCT USED FOR UNKNOWN INDICATION
     Route: 055
     Dates: start: 20100606, end: 20100723

REACTIONS (4)
  - DEATH [None]
  - DEEP VEIN THROMBOSIS [None]
  - PULMONARY EOSINOPHILIA [None]
  - PULMONARY HAEMORRHAGE [None]
